FAERS Safety Report 4640604-4 (Version None)
Quarter: 2005Q2

REPORT INFORMATION
  Report Type: 
  Country: None (occurrence: None)
  Receive Date: 20050419
  Receipt Date: 20010605
  Transmission Date: 20051028
  Serious: Yes (Hospitalization)
  Sender: FDA-Public Use
  Company Number: ETHYOL-01568

PATIENT
  Sex: Female
  Weight: 61 kg

DRUGS (4)
  1. ETHYOL [Suspect]
     Dosage: 500 MG, 3 IN 1 WK, SUBCUTANEOUS
     Route: 058
     Dates: start: 20100219, end: 20010409
  2. HALCION [Concomitant]
  3. LENTOGESIC (LEVOGLUTAMIDE, PARACETAMOL, DEXTROPROPOXYPHENE HYDROCHLORI [Concomitant]
  4. ANDOLEX C MOUTHWASH                 (BENZYDAMINE HYDROCHLORIDE) [Concomitant]

REACTIONS (6)
  - INJECTION SITE RASH [None]
  - INJECTION SITE REACTION [None]
  - RASH ERYTHEMATOUS [None]
  - RASH GENERALISED [None]
  - RASH PRURITIC [None]
  - SKIN OEDEMA [None]
